FAERS Safety Report 6678609-4 (Version None)
Quarter: 2010Q2

REPORT INFORMATION
  Report Type: 
  Country: None (occurrence: None)
  Receive Date: 20100412
  Receipt Date: 20100412
  Transmission Date: 20101027
  Serious: Yes (Hospitalization)
  Sender: FDA-Public Use
  Company Number: None

PATIENT
  Age: 78 Year
  Sex: Female
  Weight: 104 kg

DRUGS (5)
  1. REGULAR INSULIN [Suspect]
     Indication: DIABETES MELLITUS MANAGEMENT
     Dosage: 12 UNITS/HOUR CONTINUOUS INFUSION
  2. CEFAZOLIN [Concomitant]
  3. DOCUSATE SODIUM [Concomitant]
  4. LANSOPRAZOLE [Concomitant]
  5. METOPROLOL TARTRATE [Concomitant]

REACTIONS (1)
  - BLOOD GLUCOSE DECREASED [None]
